FAERS Safety Report 23122771 (Version 1)
Quarter: 2023Q4

REPORT INFORMATION
  Report Type: Report from Study
  Country: PL (occurrence: PL)
  Receive Date: 20231030
  Receipt Date: 20231030
  Transmission Date: 20240110
  Serious: Yes (Other)
  Sender: FDA-Public Use
  Company Number: PL-ABBVIE-5464038

PATIENT
  Age: 53 Year
  Sex: Male

DRUGS (2)
  1. VENETOCLAX [Suspect]
     Active Substance: VENETOCLAX
     Indication: Acute myeloid leukaemia
     Route: 048
     Dates: start: 20211209
  2. AZACITIDINE [Concomitant]
     Active Substance: AZACITIDINE
     Indication: Acute myeloid leukaemia
     Route: 065
     Dates: start: 20211209

REACTIONS (5)
  - Acute myeloid leukaemia recurrent [Unknown]
  - Drug resistance [Unknown]
  - Liver function test increased [Unknown]
  - Off label use [Unknown]
  - Minimal residual disease [Unknown]

NARRATIVE: CASE EVENT DATE: 20220101
